FAERS Safety Report 12571629 (Version 1)
Quarter: 2016Q3

REPORT INFORMATION
  Report Type: Spontaneous
  Country: US (occurrence: US)
  Receive Date: 20160719
  Receipt Date: 20160719
  Transmission Date: 20161109
  Serious: No
  Sender: FDA-Public Use
  Company Number: US-BAUSCH-BL-2016-007917

PATIENT
  Age: 17 Year
  Sex: Female
  Weight: 49.94 kg

DRUGS (1)
  1. XIFAXAN [Suspect]
     Active Substance: RIFAXIMIN
     Indication: IMPAIRED GASTRIC EMPTYING
     Route: 048
     Dates: start: 20160322, end: 20160327

REACTIONS (6)
  - Decreased appetite [Recovering/Resolving]
  - Dissociation [Recovering/Resolving]
  - Dehydration [Recovering/Resolving]
  - Fatigue [Recovering/Resolving]
  - Confusional state [Recovering/Resolving]
  - Off label use [Recovered/Resolved]

NARRATIVE: CASE EVENT DATE: 20160322
